FAERS Safety Report 9941857 (Version 1)
Quarter: 2014Q1

REPORT INFORMATION
  Report Type: Report from Study
  Country: US (occurrence: US)
  Receive Date: 20140303
  Receipt Date: 20140303
  Transmission Date: 20141002
  Serious: No
  Sender: FDA-Public Use
  Company Number: US-ABBVIE-13P-163-1040164-00

PATIENT
  Age: 56 Year
  Sex: Female

DRUGS (7)
  1. HUMIRA [Suspect]
     Indication: RHEUMATOID ARTHRITIS
     Route: 058
  2. SYNTHROID [Concomitant]
     Indication: BASEDOW^S DISEASE
  3. CARVEDILOL [Concomitant]
     Indication: CARDIAC DISORDER
  4. DICLOFENAC [Concomitant]
     Indication: RHEUMATOID ARTHRITIS
  5. FUROSEMIDE [Concomitant]
     Indication: PRODUCT USED FOR UNKNOWN INDICATION
  6. PANTOPRAZOLE SODIUM [Concomitant]
     Indication: GASTRIC DISORDER
  7. ASPIRIN [Concomitant]
     Indication: PRODUCT USED FOR UNKNOWN INDICATION

REACTIONS (1)
  - Diarrhoea [Not Recovered/Not Resolved]
